FAERS Safety Report 15499853 (Version 2)
Quarter: 2018Q4

REPORT INFORMATION
  Report Type: Report from Study
  Country: GB (occurrence: GB)
  Receive Date: 20181015
  Receipt Date: 20181207
  Transmission Date: 20190205
  Serious: No
  Sender: FDA-Public Use
  Company Number: GB-FERRINGPH-2018FE05499

PATIENT

DRUGS (1)
  1. DINOPROSTONE. [Suspect]
     Active Substance: DINOPROSTONE
     Indication: LABOUR INDUCTION
     Dosage: 10 MG, UNK
     Route: 067

REACTIONS (2)
  - Product use issue [Recovered/Resolved]
  - Off label use [Recovered/Resolved]
